FAERS Safety Report 7553617-X (Version None)
Quarter: 2011Q2

REPORT INFORMATION
  Report Type: 
  Country: None (occurrence: None)
  Receive Date: 20110609
  Receipt Date: 20110530
  Transmission Date: 20111010
  Serious: Yes (Other)
  Sender: FDA-Public Use
  Company Number: 1000021474

PATIENT
  Age: 75 Year
  Sex: Female
  Weight: 43 kg

DRUGS (2)
  1. ROFLUMILAST (ROFLUMILAST) (500 MICROGRAM, TABLETS) [Suspect]
     Indication: CONDITION AGGRAVATED
     Dosage: 500 MCG (500 MCG, 1 IN 1 D),ORAL
     Route: 048
     Dates: start: 20110324, end: 20110418
  2. ROFLUMILAST (ROFLUMILAST) (500 MICROGRAM, TABLETS) [Suspect]
     Indication: CHRONIC OBSTRUCTIVE PULMONARY DISEASE
     Dosage: 500 MCG (500 MCG, 1 IN 1 D),ORAL
     Route: 048
     Dates: start: 20110324, end: 20110418

REACTIONS (3)
  - ABDOMINAL PAIN [None]
  - WEIGHT DECREASED [None]
  - POOR QUALITY SLEEP [None]
